FAERS Safety Report 10637480 (Version 1)
Quarter: 2014Q4

REPORT INFORMATION
  Report Type: Spontaneous
  Country: US (occurrence: None)
  Receive Date: 20141121
  Receipt Date: 20141121
  Transmission Date: 20150529
  Serious: No
  Sender: FDA-Public Use
  Company Number: 163-10004-14091808

PATIENT
  Sex: Male

DRUGS (5)
  1. METFORMIN(METFORMIN) [Concomitant]
  2. JANUVIA(SITAGLIPTIN PHOSPHATE) [Concomitant]
  3. OTEZLA [Suspect]
     Active Substance: APREMILAST
     Indication: PSORIASIS
     Route: 048
  4. LIPITOR(ATORVASTATIN) [Concomitant]
  5. GLIPIZIDE(GLIPIZIDE) [Concomitant]

REACTIONS (2)
  - Cough [None]
  - Nasopharyngitis [None]
